FAERS Safety Report 20116372 (Version 2)
Quarter: 2021Q4

REPORT INFORMATION
  Report Type: Spontaneous
  Country: GB (occurrence: GB)
  Receive Date: 20211126
  Receipt Date: 20211217
  Transmission Date: 20220303
  Serious: Yes (Life-Threatening, Other)
  Sender: FDA-Public Use
  Company Number: GB-MHRA-EYC 00266173

PATIENT
  Age: 16 Year
  Sex: Female
  Weight: 39.8 kg

DRUGS (1)
  1. ISOTRETINOIN [Suspect]
     Active Substance: ISOTRETINOIN
     Indication: Decreased appetite
     Dosage: 30MG DAILY
     Route: 048
     Dates: start: 20210316, end: 20211008

REACTIONS (9)
  - Abnormal loss of weight [Not Recovered/Not Resolved]
  - Lip dry [Unknown]
  - Epistaxis [Unknown]
  - Constipation [Unknown]
  - Diarrhoea [Unknown]
  - Alanine aminotransferase increased [Unknown]
  - Arthralgia [Unknown]
  - Mood altered [Unknown]
  - Eating disorder [Unknown]

NARRATIVE: CASE EVENT DATE: 20210316
